FAERS Safety Report 7183383-1 (Version None)
Quarter: 2010Q4

REPORT INFORMATION
  Report Type: 
  Country: None (occurrence: None)
  Receive Date: 20101222
  Receipt Date: 20101210
  Transmission Date: 20110411
  Serious: Yes (Other)
  Sender: FDA-Public Use
  Company Number: JP-SANOFI-AVENTIS-2010SA074855

PATIENT
  Age: 70 Year
  Sex: Male
  Weight: 75 kg

DRUGS (12)
  1. OXALIPLATIN [Suspect]
     Indication: COLON CANCER
     Route: 042
     Dates: start: 20100603, end: 20100603
  2. OXALIPLATIN [Suspect]
     Route: 042
     Dates: start: 20101019, end: 20101019
  3. OXALIPLATIN [Suspect]
     Route: 042
     Dates: start: 20101109, end: 20101109
  4. CAPECITABINE [Suspect]
     Indication: COLON CANCER
     Route: 048
     Dates: start: 20100603
  5. CAPECITABINE [Suspect]
     Route: 048
     Dates: start: 20101019, end: 20101116
  6. BEVACIZUMAB [Suspect]
     Indication: COLON CANCER
     Route: 041
     Dates: start: 20100603
  7. BEVACIZUMAB [Suspect]
     Route: 041
     Dates: start: 20101019, end: 20101109
  8. URSO 250 [Concomitant]
  9. MAGNESIUM OXIDE [Concomitant]
  10. ALDACTONE [Concomitant]
  11. TEPRENONE [Concomitant]
  12. GLIMICRON [Concomitant]

REACTIONS (1)
  - DUODENAL ULCER [None]
